FAERS Safety Report 15105140 (Version 2)
Quarter: 2018Q3

REPORT INFORMATION
  Report Type: Spontaneous
  Country: US (occurrence: US)
  Receive Date: 20180704
  Receipt Date: 20180718
  Transmission Date: 20181010
  Serious: Yes (Other)
  Sender: FDA-Public Use
  Company Number: US-UCBSA-2018028891

PATIENT
  Age: 64 Year
  Sex: Female

DRUGS (2)
  1. CIMZIA [Suspect]
     Active Substance: CERTOLIZUMAB PEGOL
     Indication: OFF LABEL USE
  2. CIMZIA [Suspect]
     Active Substance: CERTOLIZUMAB PEGOL
     Indication: PSORIASIS
     Dosage: 400 MG, EV 2 WEEKS(QOW)
     Route: 058
     Dates: start: 20180522, end: 201806

REACTIONS (7)
  - Swelling [Unknown]
  - Headache [Unknown]
  - Off label use [Unknown]
  - Peripheral swelling [Unknown]
  - Swelling face [Unknown]
  - Decreased appetite [Unknown]
  - Urine abnormality [Unknown]

NARRATIVE: CASE EVENT DATE: 2018
